FAERS Safety Report 15868405 (Version 1)
Quarter: 2019Q1

REPORT INFORMATION
  Report Type: Report from Study
  Country: None (occurrence: CA)
  Receive Date: 20190125
  Receipt Date: 20190125
  Transmission Date: 20190417
  Serious: Yes (Other)
  Sender: FDA-Public Use
  Company Number: CA-ABBVIE-18K-028-2463289-00

PATIENT
  Age: 21 Year
  Sex: Female

DRUGS (3)
  1. HUMIRA [Suspect]
     Active Substance: ADALIMUMAB
     Route: 058
     Dates: start: 201808, end: 20180827
  2. HUMIRA [Suspect]
     Active Substance: ADALIMUMAB
     Indication: CROHN^S DISEASE
     Route: 058
     Dates: start: 20180517, end: 2018
  3. HUMIRA [Suspect]
     Active Substance: ADALIMUMAB
     Route: 058
     Dates: start: 2018

REACTIONS (11)
  - Ear infection [Unknown]
  - Skin bacterial infection [Unknown]
  - Exposure during pregnancy [Unknown]
  - Live birth [Unknown]
  - Therapeutic response shortened [Not Recovered/Not Resolved]
  - Complication of pregnancy [Unknown]
  - Injection site mass [Recovered/Resolved]
  - Abdominal pain [Not Recovered/Not Resolved]
  - Diarrhoea [Not Recovered/Not Resolved]
  - Injection site pain [Not Recovered/Not Resolved]
  - Drug level decreased [Not Recovered/Not Resolved]

NARRATIVE: CASE EVENT DATE: 2018
